FAERS Safety Report 7877598-4 (Version None)
Quarter: 2011Q4

REPORT INFORMATION
  Report Type: 
  Country: None (occurrence: None)
  Receive Date: 20111031
  Receipt Date: 20111020
  Transmission Date: 20120403
  Serious: Yes (Other)
  Sender: FDA-Public Use
  Company Number: US-ASTRAZENECA-2010SE08422

PATIENT
  Age: 982 Month
  Sex: Male

DRUGS (3)
  1. NEXIUM [Suspect]
     Indication: GASTROOESOPHAGEAL REFLUX DISEASE
     Route: 048
  2. OMEPRAZOLE [Suspect]
     Route: 048
  3. NEXIUM [Suspect]
     Route: 048

REACTIONS (4)
  - MYOCARDIAL INFARCTION [None]
  - CHOKING [None]
  - DRUG INEFFECTIVE [None]
  - COUGH [None]
